FAERS Safety Report 5757899-6 (Version None)
Quarter: 2008Q2

REPORT INFORMATION
  Report Type: 
  Country: None (occurrence: None)
  Receive Date: 20080603
  Receipt Date: 20080603
  Transmission Date: 20081010
  Serious: Yes (Other)
  Sender: FDA-Public Use
  Company Number: None

PATIENT
  Age: 64 Year
  Sex: Female
  Weight: 66 kg

DRUGS (1)
  1. CREST-PRO HEALTH MOUTH WASH MINT FLAVOR ALCOHOL FREE 500ML [Suspect]
     Dosage: 2XDAY

REACTIONS (2)
  - APPLICATION SITE EXFOLIATION [None]
  - TOOTH DISCOLOURATION [None]
